FAERS Safety Report 12633291 (Version 2)
Quarter: 2016Q3

REPORT INFORMATION
  Report Type: Spontaneous
  Country: US (occurrence: US)
  Receive Date: 20160808
  Receipt Date: 20160808
  Transmission Date: 20161109
  Serious: No
  Sender: FDA-Public Use
  Company Number: US-BEH-2016060357

PATIENT
  Sex: Female
  Weight: 112 kg

DRUGS (29)
  1. HIZENTRA [Suspect]
     Active Substance: HUMAN IMMUNOGLOBULIN G
     Indication: IMMUNODEFICIENCY COMMON VARIABLE
     Route: 058
  2. LIDOCAINE/PRILOCAINE [Concomitant]
     Active Substance: LIDOCAINE\PRILOCAINE
  3. EPIPEN [Concomitant]
     Active Substance: EPINEPHRINE
  4. FISH OIL [Concomitant]
     Active Substance: FISH OIL
  5. REQUIP [Concomitant]
     Active Substance: ROPINIROLE HYDROCHLORIDE
  6. MIRALAX [Concomitant]
     Active Substance: POLYETHYLENE GLYCOL 3350
  7. MAGNESIUM OXIDE. [Concomitant]
     Active Substance: MAGNESIUM OXIDE
  8. LEVOXYL [Concomitant]
     Active Substance: LEVOTHYROXINE SODIUM
  9. ACIDOPHILUS [Concomitant]
     Active Substance: LACTOBACILLUS ACIDOPHILUS
  10. LYRICA [Concomitant]
     Active Substance: PREGABALIN
  11. CICLOPIROX. [Concomitant]
     Active Substance: CICLOPIROX
  12. KLONOPIN [Concomitant]
     Active Substance: CLONAZEPAM
  13. NAPROXEN. [Concomitant]
     Active Substance: NAPROXEN
  14. ACYCLOVIR. [Concomitant]
     Active Substance: ACYCLOVIR
  15. LORATADINE. [Concomitant]
     Active Substance: LORATADINE
  16. ASPIRIN EC [Concomitant]
     Active Substance: ASPIRIN
  17. LIPITOR [Concomitant]
     Active Substance: ATORVASTATIN CALCIUM
  18. AMOXICILLIN. [Concomitant]
     Active Substance: AMOXICILLIN
  19. METFORMIN [Concomitant]
     Active Substance: METFORMIN HYDROCHLORIDE
  20. LORATADINE. [Concomitant]
     Active Substance: LORATADINE
  21. LAMICTAL [Concomitant]
     Active Substance: LAMOTRIGINE
  22. AMLACTIN [Concomitant]
     Active Substance: AMMONIUM LACTATE
  23. ATENOLOL. [Concomitant]
     Active Substance: ATENOLOL
  24. RANITIDINE. [Concomitant]
     Active Substance: RANITIDINE
  25. COLACE [Concomitant]
     Active Substance: DOCUSATE SODIUM
  26. VICODIN ES [Concomitant]
     Active Substance: ACETAMINOPHEN\HYDROCODONE BITARTRATE
  27. ATIVAN [Concomitant]
     Active Substance: LORAZEPAM
  28. RESTORIL [Concomitant]
     Active Substance: TEMAZEPAM
  29. CENTRUM SILVER [Concomitant]
     Active Substance: MINERALS\VITAMINS

REACTIONS (1)
  - Unevaluable event [Unknown]
